FAERS Safety Report 16158059 (Version 1)
Quarter: 2019Q2

REPORT INFORMATION
  Report Type: Spontaneous
  Country: US (occurrence: US)
  Receive Date: 20190404
  Receipt Date: 20190404
  Transmission Date: 20190711
  Serious: Yes (Other)
  Sender: FDA-Public Use
  Company Number: US-HERITAGE PHARMACEUTICALS-2019HTG00108

PATIENT
  Sex: Female

DRUGS (1)
  1. LIMBITROL [Suspect]
     Active Substance: AMITRIPTYLINE\CHLORDIAZEPOXIDE

REACTIONS (1)
  - Dementia [Unknown]
